FAERS Safety Report 6524606-9 (Version None)
Quarter: 2010Q1

REPORT INFORMATION
  Report Type: 
  Country: None (occurrence: None)
  Receive Date: 20100104
  Receipt Date: 20091223
  Transmission Date: 20100710
  Serious: Yes (Hospitalization, Other)
  Sender: FDA-Public Use
  Company Number: PHHY2009DE54390

PATIENT
  Sex: Male
  Weight: 104 kg

DRUGS (10)
  1. ALISKIREN ALI+ [Suspect]
     Indication: HYPERTENSION
     Dosage: UNK
     Dates: start: 20081218
  2. ORAL ANTIDIABETICS [Concomitant]
     Indication: DIABETES MELLITUS
  3. ASPIRIN [Concomitant]
     Indication: CORONARY ARTERY DISEASE
     Dosage: 100 MG/DAY
     Route: 048
     Dates: start: 20000101
  4. MARCUMAR [Concomitant]
     Indication: ATRIAL FIBRILLATION
     Dosage: 3 MG/DAY
     Route: 048
     Dates: start: 20060817
  5. LISIHEXAL [Concomitant]
     Indication: HYPERTENSION
     Dosage: 40 MG/DAY
     Dates: start: 20000101
  6. BISOHEXAL [Concomitant]
     Indication: ATRIAL FIBRILLATION
     Dosage: 10 MG/DAY
     Dates: start: 20000101
  7. AMLODIPINE [Concomitant]
     Indication: HYPERTENSION
     Dosage: 10 MG/DAY
     Dates: start: 20000101
  8. HYDROCHLOROTHIAZIDE [Concomitant]
     Indication: HYPERTENSION
     Dosage: 25 MG/DAY
     Dates: start: 20000101
  9. SIMVASTATIN [Concomitant]
     Indication: HYPERCHOLESTEROLAEMIA
     Dosage: 80 MG/DAY
     Dates: start: 20071101
  10. PLAVIX [Concomitant]
     Indication: STENT PLACEMENT
     Dosage: 75 MG/DAY
     Dates: start: 20080306

REACTIONS (3)
  - ATRIAL FIBRILLATION [None]
  - CORONARY ARTERY DISEASE [None]
  - PERCUTANEOUS CORONARY INTERVENTION [None]
